FAERS Safety Report 8007182-3 (Version None)
Quarter: 2011Q4

REPORT INFORMATION
  Report Type: 
  Country: None (occurrence: None)
  Receive Date: 20111227
  Receipt Date: 20111220
  Transmission Date: 20120403
  Serious: Yes (Death, Hospitalization)
  Sender: FDA-Public Use
  Company Number: JP-BAYER-2011-021846

PATIENT
  Age: 63 Year
  Sex: Male
  Weight: 73 kg

DRUGS (9)
  1. NEXAVAR [Suspect]
     Indication: HEPATIC NEOPLASM MALIGNANT
     Dosage: 400 MG, BID
     Route: 048
     Dates: start: 20110304, end: 20110306
  2. NEXAVAR [Suspect]
     Dosage: DAILY DOSE 400 MG
     Route: 048
     Dates: start: 20110329, end: 20110404
  3. ULINASTATIN [Concomitant]
     Dosage: UNK
     Route: 042
     Dates: start: 20110101, end: 20110101
  4. AMARYL [Concomitant]
     Indication: MEDICAL DIET
     Dosage: DAILY DOSE 1 MG
     Route: 048
     Dates: end: 20110330
  5. NEXAVAR [Suspect]
     Dosage: 200 MG, QD
     Dates: start: 20110312, end: 20110328
  6. OXYCONTIN [Concomitant]
     Indication: PAIN
     Dosage: DAILY DOSE 20 MG
     Route: 048
     Dates: start: 20110308, end: 20110407
  7. VOGLIBOSE [Concomitant]
     Indication: MEDICAL DIET
     Dosage: DAILY DOSE .6 MG
     Route: 048
     Dates: start: 20110331
  8. BARACLUDE [Concomitant]
     Indication: HEPATITIS B
     Dosage: DAILY DOSE .5 MG
     Route: 048
     Dates: end: 20110409
  9. ANTIBIOTICS [Concomitant]
     Dosage: UNK
     Route: 065
     Dates: start: 20110101, end: 20110101

REACTIONS (5)
  - TUMOUR LYSIS SYNDROME [None]
  - HEPATIC FAILURE [None]
  - LIVER DISORDER [None]
  - BLOOD LACTATE DEHYDROGENASE INCREASED [None]
  - PYREXIA [None]
